FAERS Safety Report 22987750 (Version 4)
Quarter: 2023Q4

REPORT INFORMATION
  Report Type: Spontaneous
  Country: US (occurrence: US)
  Receive Date: 20230926
  Receipt Date: 20231117
  Transmission Date: 20240110
  Serious: No
  Sender: FDA-Public Use
  Company Number: US-LUPIN PHARMACEUTICALS INC.-2023-08040

PATIENT

DRUGS (1)
  1. XOPENEX HFA [Suspect]
     Active Substance: LEVALBUTEROL TARTRATE
     Indication: Asthma
     Dosage: UNK, PRN, AS NEEDED
     Dates: start: 20230913

REACTIONS (4)
  - Drug dose omission by device [Unknown]
  - Product packaging quantity issue [Unknown]
  - Device malfunction [Unknown]
  - No adverse event [Unknown]
